FAERS Safety Report 9017071 (Version 2)
Quarter: 2013Q1

REPORT INFORMATION
  Report Type: Report from Study
  Country: CA (occurrence: CA)
  Receive Date: 20130117
  Receipt Date: 20130304
  Transmission Date: 20140127
  Serious: Yes (Death, Other)
  Sender: FDA-Public Use
  Company Number: PHHY2013CA004193

PATIENT
  Age: 57 None
  Sex: Female

DRUGS (7)
  1. CLOZARIL [Suspect]
     Indication: SCHIZOAFFECTIVE DISORDER
     Dosage: 450 MG, (50 MG AM AND 400 MG QHS)
     Route: 048
     Dates: start: 19980319
  2. LORAZEPAM [Concomitant]
     Dosage: 2 MG, UNK
  3. CRESTOR [Concomitant]
     Dosage: 5 MG, OD
  4. OLANZAPINE [Concomitant]
     Dosage: 10 MG, QHS
  5. PEG 3350 AND ELECTROLYTES [Concomitant]
     Dosage: UNK UKN, UNK
  6. MOBICOX [Concomitant]
     Dosage: 7.5 MG, BID
  7. PREVACID [Concomitant]
     Dosage: 30 MG, OD

REACTIONS (2)
  - Death [Fatal]
  - Idiopathic pulmonary fibrosis [Unknown]
